FAERS Safety Report 24023771 (Version 3)
Quarter: 2024Q3

REPORT INFORMATION
  Report Type: Report from Study
  Country: CN (occurrence: CN)
  Receive Date: 20240627
  Receipt Date: 20240710
  Transmission Date: 20241016
  Serious: No
  Sender: ROCHE
  Company Number: CN-ROCHE-3126194

PATIENT
  Age: 53 Year
  Sex: Female

DRUGS (2)
  1. ALECTINIB [Suspect]
     Active Substance: ALECTINIB
     Indication: Non-small cell lung cancer metastatic
     Route: 048
     Dates: start: 20211224
  2. RESERPINE [Concomitant]
     Active Substance: RESERPINE
     Indication: Hypertension
     Route: 048
     Dates: start: 2000

REACTIONS (4)
  - Blood bilirubin increased [Not Recovered/Not Resolved]
  - Bile acids increased [Recovered/Resolved]
  - Alanine aminotransferase increased [Not Recovered/Not Resolved]
  - Aspartate aminotransferase increased [Not Recovered/Not Resolved]

NARRATIVE: CASE EVENT DATE: 20220509
